FAERS Safety Report 5959650-3 (Version None)
Quarter: 2008Q4

REPORT INFORMATION
  Report Type: 
  Country: None (occurrence: None)
  Receive Date: 20081120
  Receipt Date: 20081110
  Transmission Date: 20090506
  Serious: Yes (Hospitalization)
  Sender: FDA-Public Use
  Company Number: IT-ELI_LILLY_AND_COMPANY-IT200811002590

PATIENT
  Age: 75 Year
  Sex: Male

DRUGS (8)
  1. HUMULIN N [Suspect]
     Indication: BLOOD GLUCOSE FLUCTUATION
     Dosage: 35 U, EACH MORNING
     Route: 065
  2. HUMULIN N [Suspect]
     Dosage: 15 U, EACH EVENING
     Route: 065
  3. HUMULIN N [Suspect]
     Dosage: 25 U, EACH MORNING
     Route: 065
  4. HUMULIN N [Suspect]
     Dosage: 5 U, EACH EVENING
     Route: 065
  5. ENALAPRIL [Concomitant]
     Indication: HYPERTENSIVE CARDIOMYOPATHY
     Dosage: 20 MG, DAILY (1/D)
     Route: 065
  6. ENALAPRIL [Concomitant]
     Dosage: UNK, UNKNOWN
     Route: 065
  7. HYDROCHLOROTHIAZIDE [Concomitant]
     Indication: HYPERTENSIVE CARDIOMYOPATHY
     Dosage: 12.5 MG, DAILY (1/D)
     Route: 065
  8. HYDROCHLOROTHIAZIDE [Concomitant]
     Dosage: UNK, UNKNOWN
     Route: 065

REACTIONS (2)
  - BLOOD GLUCOSE INCREASED [None]
  - CARDIAC FAILURE CONGESTIVE [None]
